FAERS Safety Report 7163009-3 (Version None)
Quarter: 2010Q4

REPORT INFORMATION
  Report Type: 
  Country: None (occurrence: None)
  Receive Date: 20101215
  Receipt Date: 20100204
  Transmission Date: 20110411
  Serious: Yes (Disabling)
  Sender: FDA-Public Use
  Company Number: GB-PFIZER INC-2005087354

PATIENT
  Age: 59 Year
  Sex: Male
  Weight: 60 kg

DRUGS (5)
  1. LYRICA [Suspect]
     Indication: NEURALGIA
     Dosage: 75 MG, 2X/DAY
     Route: 048
  2. OXYCONTIN [Interacting]
     Indication: PAIN
     Route: 048
     Dates: start: 20041101, end: 20050201
  3. NIFEDIPINE [Concomitant]
     Route: 048
  4. AMITRIPTYLINE [Concomitant]
     Route: 048
     Dates: start: 20041201
  5. PARACETAMOL [Concomitant]
     Route: 048
     Dates: start: 20041201

REACTIONS (5)
  - CONFUSIONAL STATE [None]
  - DRUG INTERACTION [None]
  - HALLUCINATION [None]
  - SEDATION [None]
  - UNEVALUABLE EVENT [None]
